FAERS Safety Report 13335826 (Version 2)
Quarter: 2017Q2

REPORT INFORMATION
  Report Type: Report from Study
  Country: US (occurrence: US)
  Receive Date: 20170314
  Receipt Date: 20170425
  Transmission Date: 20170830
  Serious: Yes (Death, Hospitalization, Other)
  Sender: FDA-Public Use
  Company Number: US-BRISTOL-MYERS SQUIBB COMPANY-BMS-2017-011130

PATIENT
  Age: 52 Year
  Sex: Male
  Weight: 83.91 kg

DRUGS (2)
  1. NIVOLUMAB [Suspect]
     Active Substance: NIVOLUMAB
     Indication: NON-SMALL CELL LUNG CANCER
     Dosage: 240 MG, Q2WK
     Route: 042
     Dates: start: 20161027, end: 20170105
  2. INCB24360 [Suspect]
     Active Substance: EPACADOSTAT
     Indication: NON-SMALL CELL LUNG CANCER
     Dosage: 300 MG, BID
     Route: 048
     Dates: start: 20161027, end: 20170105

REACTIONS (4)
  - Lung cancer metastatic [Fatal]
  - Large intestinal obstruction [Not Recovered/Not Resolved]
  - Metastases to peritoneum [Not Recovered/Not Resolved]
  - Pain [Not Recovered/Not Resolved]

NARRATIVE: CASE EVENT DATE: 20170119
